FAERS Safety Report 13792576 (Version 1)
Quarter: 2017Q3

REPORT INFORMATION
  Report Type: Report from Study
  Country: ES (occurrence: ES)
  Receive Date: 20170726
  Receipt Date: 20170726
  Transmission Date: 20171127
  Serious: Yes (Hospitalization)
  Sender: FDA-Public Use
  Company Number: ES-B.I. PHARMACEUTICALS,INC./RIDGEFIELD-2017-BI-041483

PATIENT
  Age: 81 Year

DRUGS (1)
  1. PRADAXA [Suspect]
     Active Substance: DABIGATRAN ETEXILATE MESYLATE
     Indication: PRODUCT USED FOR UNKNOWN INDICATION
     Route: 065

REACTIONS (5)
  - Intraventricular haemorrhage [Unknown]
  - Pericardial effusion [Unknown]
  - Hydrocephalus [Unknown]
  - Cerebral infarction [Unknown]
  - Lung consolidation [Unknown]

NARRATIVE: CASE EVENT DATE: 20161129
